FAERS Safety Report 19676452 (Version 3)
Quarter: 2021Q3

REPORT INFORMATION
  Report Type: Spontaneous
  Country: US (occurrence: US)
  Receive Date: 20210810
  Receipt Date: 20210818
  Transmission Date: 20211014
  Serious: Yes (Hospitalization)
  Sender: FDA-Public Use
  Company Number: US-ABBVIE-21K-163-4026231-00

PATIENT
  Age: 73 Year
  Sex: Male
  Weight: 72.64 kg

DRUGS (10)
  1. HUMIRA [Suspect]
     Active Substance: ADALIMUMAB
     Route: 058
     Dates: start: 20210811
  2. METOPROLOL. [Concomitant]
     Active Substance: METOPROLOL
     Indication: ARRHYTHMIA PROPHYLAXIS
  3. LISINOPRIL. [Concomitant]
     Active Substance: LISINOPRIL
     Indication: CARDIAC DISORDER
  4. PROPAFENONE. [Concomitant]
     Active Substance: PROPAFENONE
     Indication: ARRHYTHMIA PROPHYLAXIS
  5. DRAMAMINE [Concomitant]
     Active Substance: DIMENHYDRINATE
     Indication: OCULAR DISCOMFORT
  6. HUMIRA [Suspect]
     Active Substance: ADALIMUMAB
     Indication: PSORIASIS
     Route: 058
     Dates: start: 20210616, end: 20210804
  7. HUMIRA [Suspect]
     Active Substance: ADALIMUMAB
     Route: 058
     Dates: end: 20210728
  8. WARFARIN [Concomitant]
     Active Substance: WARFARIN
     Indication: ATRIAL FIBRILLATION
  9. LATANOPROST. [Concomitant]
     Active Substance: LATANOPROST
     Indication: OCULAR DISCOMFORT
  10. BRIMONIDINE TARTRATE. [Concomitant]
     Active Substance: BRIMONIDINE TARTRATE
     Indication: OCULAR DISCOMFORT

REACTIONS (6)
  - Muscle fatigue [Not Recovered/Not Resolved]
  - Pain in extremity [Not Recovered/Not Resolved]
  - Atrial fibrillation [Not Recovered/Not Resolved]
  - Rotator cuff syndrome [Not Recovered/Not Resolved]
  - Fall [Recovered/Resolved with Sequelae]
  - Arthralgia [Not Recovered/Not Resolved]

NARRATIVE: CASE EVENT DATE: 20210719
